FAERS Safety Report 9294160 (Version 1)
Quarter: 2013Q2

REPORT INFORMATION
  Report Type: Spontaneous
  Country: US (occurrence: US)
  Receive Date: 20130517
  Receipt Date: 20130517
  Transmission Date: 20140414
  Serious: No
  Sender: FDA-Public Use
  Company Number: US-009507513-1305USA005179

PATIENT
  Sex: Male

DRUGS (2)
  1. JANUMET [Suspect]
     Dosage: 50/1000, BID
     Route: 048
  2. JANUVIA [Suspect]
     Route: 048

REACTIONS (1)
  - Diarrhoea [Unknown]
